FAERS Safety Report 20735755 (Version 1)
Quarter: 2022Q2

REPORT INFORMATION
  Report Type: Spontaneous
  Country: IT (occurrence: None)
  Receive Date: 20220421
  Receipt Date: 20220421
  Transmission Date: 20220720
  Serious: Yes (Other)
  Sender: FDA-Public Use
  Company Number: 2022A151509

PATIENT
  Age: 36 Year
  Sex: Female

DRUGS (4)
  1. QUETIAPINE FUMARATE [Suspect]
     Active Substance: QUETIAPINE FUMARATE
     Indication: Affective disorder
     Dosage: 150.0MG ONCE/SINGLE ADMINISTRATION
     Route: 048
     Dates: start: 20220226, end: 20220226
  2. LORAZEPAM [Suspect]
     Active Substance: LORAZEPAM
     Indication: Affective disorder
     Dosage: 15.0DF ONCE/SINGLE ADMINISTRATION
     Route: 048
     Dates: start: 20220226, end: 20220226
  3. PAROXETINE [Concomitant]
     Active Substance: PAROXETINE
     Indication: Major depression
     Route: 048
     Dates: start: 20200101, end: 20200101
  4. OLANZAPINE [Concomitant]
     Active Substance: OLANZAPINE
     Indication: Major depression
     Route: 048
     Dates: start: 20200101, end: 20200101

REACTIONS (3)
  - Drug abuse [Recovered/Resolved]
  - Bradyphrenia [Recovered/Resolved]
  - Bradykinesia [Recovered/Resolved]

NARRATIVE: CASE EVENT DATE: 20220226
